FAERS Safety Report 6078765-5 (Version None)
Quarter: 2009Q1

REPORT INFORMATION
  Report Type: 
  Country: None (occurrence: None)
  Receive Date: 20090216
  Receipt Date: 20090115
  Transmission Date: 20090719
  Serious: No
  Sender: FDA-Public Use
  Company Number: US-BAYER-200910159BCC

PATIENT
  Age: 16 Year
  Sex: Female
  Weight: 57 kg

DRUGS (4)
  1. ALEVE (CAPLET) [Suspect]
     Indication: MUSCULOSKELETAL CHEST PAIN
     Dosage: UNIT DOSE: 220 MG
     Dates: start: 20090114
  2. ALEVE (CAPLET) [Suspect]
     Dosage: UNIT DOSE: 220 MG
     Dates: start: 20090115
  3. BENADRYL [Concomitant]
     Indication: SLEEP DISORDER
  4. MELATONIN [Concomitant]
     Indication: SLEEP DISORDER

REACTIONS (1)
  - SOMNOLENCE [None]
